FAERS Safety Report 8456215-9 (Version None)
Quarter: 2012Q2

REPORT INFORMATION
  Report Type: 
  Country: None (occurrence: None)
  Receive Date: 20120621
  Receipt Date: 20120607
  Transmission Date: 20120825
  Serious: Yes (Death, Other)
  Sender: FDA-Public Use
  Company Number: JP-ROCHE-1069553

PATIENT
  Sex: Male
  Weight: 75 kg

DRUGS (18)
  1. LOXOPROFEN [Suspect]
     Indication: CANCER PAIN
     Route: 048
     Dates: start: 20110706, end: 20120509
  2. REBAMIPIDE [Concomitant]
     Dosage: DOSAGE IS UNCERTAIN.
     Route: 048
  3. METFORMIN HCL [Concomitant]
     Dosage: DOSAGE IS UNCERTAIN.
     Route: 048
  4. LORAZEPAM [Concomitant]
     Dosage: DOSAGE IS UNCERTAIN.
     Route: 048
  5. BEZATOL SR [Concomitant]
     Dosage: DOSAGE IS UNCERTAIN.
     Route: 048
  6. AMARYL [Concomitant]
     Dosage: DOSAGE IS UNCERTAIN.
     Route: 048
  7. AMLODIPINE [Concomitant]
     Dosage: DOSAGE IS UNCERTAIN.
     Route: 048
  8. DECADRON [Concomitant]
     Dosage: DOSAGE IS UNCERTAIN.
     Route: 065
  9. AVASTIN [Suspect]
     Indication: LUNG ADENOCARCINOMA METASTATIC
     Route: 041
     Dates: start: 20111129, end: 20120502
  10. MIGLITOL [Concomitant]
     Dosage: DOSAGE IS UNCERTAIN.
     Route: 048
  11. PANVITAN [Concomitant]
     Dosage: DOSAGE IS UNCERTAIN.
     Route: 048
  12. LANSOPRAZOLE [Concomitant]
     Dosage: DOSAGE IS UNCERTAIN.
     Route: 048
  13. MAGLAX [Concomitant]
     Dosage: DOSAGE IS UNCERTAIN.
     Route: 048
  14. ALIMTA [Concomitant]
     Indication: LUNG ADENOCARCINOMA METASTATIC
     Route: 041
     Dates: start: 20110101, end: 20120502
  15. CARBOPLATIN [Concomitant]
     Indication: LUNG ADENOCARCINOMA METASTATIC
     Route: 041
     Dates: start: 20110101, end: 20110502
  16. AMITRIPTYLINE HCL [Concomitant]
     Dosage: DOSAGE IS UNCERTAIN.
     Route: 048
  17. LYRICA [Concomitant]
     Dosage: DOSAGE IS UNCERTAIN.
     Route: 048
  18. EMEND [Concomitant]
     Dosage: DOSAGE IS UNCERTAIN.
     Route: 048

REACTIONS (7)
  - BONE MARROW FAILURE [None]
  - HYPERTENSION [None]
  - ABSCESS [None]
  - SEPSIS [None]
  - GASTROINTESTINAL PERFORATION [None]
  - PERITONITIS [None]
  - DISSEMINATED INTRAVASCULAR COAGULATION [None]
